FAERS Safety Report 5866907-3 (Version None)
Quarter: 2008Q3

REPORT INFORMATION
  Report Type: 
  Country: None (occurrence: None)
  Receive Date: 20080902
  Receipt Date: 20080505
  Transmission Date: 20090109
  Serious: No
  Sender: FDA-Public Use
  Company Number: US-BAYER-200812158BCC

PATIENT
  Age: 23 Year
  Sex: Female
  Weight: 66 kg

DRUGS (3)
  1. ALEVE (CAPLET) [Suspect]
     Indication: MYALGIA
     Dosage: TOTAL DAILY DOSE: 440 MG  UNIT DOSE: 220 MG
     Route: 048
     Dates: start: 20080505
  2. TYLENOL COLD AND FEVER [Suspect]
     Indication: PYREXIA
     Dosage: TOTAL DAILY DOSE: 2 DF  UNIT DOSE: 2 DF
     Route: 048
     Dates: start: 20080505
  3. EXCEDRIN (MIGRAINE) [Suspect]
     Indication: HEADACHE
     Dosage: TOTAL DAILY DOSE: 2 DF  UNIT DOSE: 2 DF
     Route: 048
     Dates: start: 20080505

REACTIONS (2)
  - ABDOMINAL PAIN UPPER [None]
  - NAUSEA [None]
